FAERS Safety Report 6411586-X (Version None)
Quarter: 2009Q4

REPORT INFORMATION
  Report Type: 
  Country: None (occurrence: None)
  Receive Date: 20091023
  Receipt Date: 20091014
  Transmission Date: 20100525
  Serious: Yes (Other)
  Sender: FDA-Public Use
  Company Number: US-JNJFOC-20091004695

PATIENT
  Age: 26 Year
  Sex: Male

DRUGS (4)
  1. ULTRAM ER [Suspect]
     Indication: DRUG USE FOR UNKNOWN INDICATION
     Dosage: 15-20 TRAMADOLS 100MG
     Route: 048
  2. ATYPICAL AND TYPICAL ANTIPSYCHOTICS [Concomitant]
     Route: 065
  3. PROTON PUMP INHIBITOR [Concomitant]
     Route: 065
  4. ANTIDEPRESSANT [Concomitant]

REACTIONS (11)
  - ASTHENIA [None]
  - BLOOD CREATINE PHOSPHOKINASE INCREASED [None]
  - BLOOD CREATININE INCREASED [None]
  - DYSURIA [None]
  - MENTAL STATUS CHANGES [None]
  - OVERDOSE [None]
  - OXYGEN SATURATION DECREASED [None]
  - RHABDOMYOLYSIS [None]
  - SINUS TACHYCARDIA [None]
  - SOMNOLENCE [None]
  - TRANSAMINASES INCREASED [None]
